FAERS Safety Report 16454507 (Version 1)
Quarter: 2019Q2

REPORT INFORMATION
  Report Type: Other
  Country: US (occurrence: US)
  Receive Date: 20190619
  Receipt Date: 20190619
  Transmission Date: 20190711
  Serious: Yes (Life-Threatening, Hospitalization)
  Sender: FDA-Public Use
  Company Number: US-BRECKENRIDGE PHARMACEUTICAL, INC.-2069389

PATIENT
  Age: 45 Year
  Sex: Male

DRUGS (6)
  1. LIDOCAINE. [Suspect]
     Active Substance: LIDOCAINE
  2. GABAPENTIN. [Suspect]
     Active Substance: GABAPENTIN
  3. AMITRIPTYLINE HYDROCHLORIDE. [Suspect]
     Active Substance: AMITRIPTYLINE HYDROCHLORIDE
  4. MELOXICAM. [Suspect]
     Active Substance: MELOXICAM
     Route: 048
  5. BACLOFEN. [Suspect]
     Active Substance: BACLOFEN
  6. PRILOCAINE HYDROCHLORIDE. [Suspect]
     Active Substance: PRILOCAINE HYDROCHLORIDE

REACTIONS (2)
  - Respiratory failure [None]
  - Cardiotoxicity [None]
